FAERS Safety Report 26044613 (Version 2)
Quarter: 2025Q4

REPORT INFORMATION
  Report Type: Report from Study
  Country: US (occurrence: US)
  Receive Date: 20251114
  Receipt Date: 20251124
  Transmission Date: 20260119
  Serious: Yes (Hospitalization)
  Sender: ABBVIE
  Company Number: US-ABBVIE-6541140

PATIENT
  Age: 54 Year
  Sex: Male
  Weight: 120.2 kg

DRUGS (12)
  1. CREON [Suspect]
     Active Substance: PANCRELIPASE AMYLASE\PANCRELIPASE LIPASE\PANCRELIPASE PROTEASE
     Indication: Pancreatic failure
     Dosage: FORM STRENGTH: 36000 UNIT?FREQUENCY TEXT: 2 CAPS PER MEAL 1 PER SNACK
     Route: 048
     Dates: start: 202507
  2. Spironolactone dc [Concomitant]
     Indication: Swelling
  3. ZYRTEC [Concomitant]
     Active Substance: CETIRIZINE HYDROCHLORIDE
     Indication: Sinus disorder
  4. FOLATE SODIUM [Concomitant]
     Active Substance: FOLATE SODIUM
     Indication: Vitamin supplementation
     Dosage: 800 MICROGRAM
  5. MAGNESIUM [Concomitant]
     Active Substance: MAGNESIUM
     Indication: Mineral supplementation
     Dosage: 250 MILLIGRAM
  6. XIFAXAN [Concomitant]
     Active Substance: RIFAXIMIN
     Indication: Liver disorder
     Dosage: 550 MILLIGRAM
  7. ALPRAZOLAM [Concomitant]
     Active Substance: ALPRAZOLAM
     Indication: Sleep disorder
     Dosage: 0.5 MILLIGRAM?FREQUENCY TEXT: BEFORE BED
  8. FUROSEMIDE [Concomitant]
     Active Substance: FUROSEMIDE
     Indication: Swelling
  9. ZINC [Concomitant]
     Active Substance: ZINC
     Indication: Mineral supplementation
     Dosage: 50 MILLIGRAM
  10. Lactulose-h [Concomitant]
     Indication: Dyspepsia
     Dosage: 30 MILLILITER
  11. SERTRALINE [Concomitant]
     Active Substance: SERTRALINE HYDROCHLORIDE
     Indication: Anxiety
     Dosage: 100 MILLIGRAM
  12. VITAMIN B1 [Concomitant]
     Active Substance: THIAMINE HYDROCHLORIDE
     Indication: Vitamin supplementation
     Dosage: 500 MILLIGRAM

REACTIONS (4)
  - Blood sodium decreased [Recovered/Resolved]
  - Drug ineffective [Not Recovered/Not Resolved]
  - Diarrhoea [Recovered/Resolved]
  - Product storage error [Not Recovered/Not Resolved]

NARRATIVE: CASE EVENT DATE: 20251022
